FAERS Safety Report 5921461-2 (Version None)
Quarter: 2008Q4

REPORT INFORMATION
  Report Type: 
  Country: None (occurrence: None)
  Receive Date: 20081016
  Receipt Date: 20081016
  Transmission Date: 20090506
  Serious: No
  Sender: FDA-Public Use
  Company Number: None

PATIENT
  Sex: Male

DRUGS (1)
  1. QUALAQUIN [Suspect]
     Indication: MUSCLE SPASMS
     Dosage: PO
     Route: 048

REACTIONS (3)
  - DRUG DISPENSING ERROR [None]
  - INTERCEPTED DRUG ADMINISTRATION ERROR [None]
  - MEDICATION ERROR [None]
